FAERS Safety Report 9736289 (Version 1)
Quarter: 2013Q4

REPORT INFORMATION
  Report Type: Spontaneous
  Country: US (occurrence: US)
  Receive Date: 20131206
  Receipt Date: 20131206
  Transmission Date: 20140711
  Serious: Yes (Hospitalization, Other)
  Sender: FDA-Public Use
  Company Number: US-TAKEDA-2013TUS002957

PATIENT
  Sex: 0

DRUGS (10)
  1. COLCRYS [Suspect]
     Indication: GOUT
     Dosage: 0.6 MG, QD
     Route: 048
     Dates: start: 20130904, end: 20130911
  2. COLCRYS [Suspect]
     Dosage: 0.6 MG, QOD
     Route: 048
     Dates: start: 20130912, end: 20131003
  3. COLCRYS [Suspect]
     Dosage: 0.6 MG, Q 4 DAYS
     Route: 048
     Dates: start: 20131004, end: 20131018
  4. METOPROLOL [Concomitant]
     Indication: HYPERTENSION
     Dosage: UNK
     Route: 048
  5. AMLODIPINE [Concomitant]
     Indication: HYPERTENSION
     Dosage: UNK
     Route: 048
  6. AMIODARONE [Concomitant]
     Indication: ATRIAL FIBRILLATION
     Dosage: UNK
     Route: 048
  7. FLOMAX                             /01280302/ [Concomitant]
     Indication: URINARY RETENTION
     Dosage: UNK
     Route: 048
  8. LOSARTAN [Concomitant]
     Indication: HYPERTENSION
     Dosage: UNK
     Route: 048
  9. LASIX                              /00032601/ [Concomitant]
     Indication: HYPERTENSION
     Dosage: UNK
     Route: 048
  10. LIPITOR [Concomitant]
     Indication: BLOOD CHOLESTEROL INCREASED
     Dosage: UNK
     Route: 048

REACTIONS (2)
  - Myocardial infarction [Recovered/Resolved]
  - Rash pruritic [Recovering/Resolving]
